FAERS Safety Report 8099404-8 (Version None)
Quarter: 2012Q1

REPORT INFORMATION
  Report Type: 
  Country: None (occurrence: None)
  Receive Date: 20120129
  Receipt Date: 20111005
  Transmission Date: 20120608
  Serious: No
  Sender: FDA-Public Use
  Company Number: US-ABBOTT-11P-163-0861623-00

PATIENT
  Sex: Female
  Weight: 56.75 kg

DRUGS (4)
  1. HUMIRA [Suspect]
     Indication: CROHN'S DISEASE
     Dates: start: 20110701, end: 20110901
  2. ASACOL [Concomitant]
     Indication: CROHN'S DISEASE
  3. MERCAPTOPURINE [Concomitant]
     Indication: CROHN'S DISEASE
  4. PREVACID [Concomitant]
     Indication: PRODUCT USED FOR UNKNOWN INDICATION

REACTIONS (5)
  - GASTRIC DILATATION [None]
  - ABDOMINAL PAIN [None]
  - FATIGUE [None]
  - GASTROINTESTINAL INFECTION [None]
  - HEADACHE [None]
